FAERS Safety Report 26155133 (Version 1)
Quarter: 2025Q4

REPORT INFORMATION
  Report Type: Report from Study
  Country: US (occurrence: US)
  Receive Date: 20251215
  Receipt Date: 20251215
  Transmission Date: 20260117
  Serious: Yes (Other)
  Sender: ETON PHARMACEUTICALS, INC
  Company Number: US-ETON-2025ETO000622

PATIENT

DRUGS (9)
  1. ALKINDI SPRINKLE [Suspect]
     Active Substance: HYDROCORTISONE
     Indication: Adrenogenital syndrome
     Dosage: 2 MILLIGRAM, 4 MG IN THE MORNING, 2 MG IN THE AFTERNOON, AND 4 MG AT BEDTIME
     Route: 048
  2. ALKINDI SPRINKLE [Suspect]
     Active Substance: HYDROCORTISONE
     Dosage: 0.5 MILLIGRAM, 3MG IN THE MORNING,1.5MG AT 13:30PM AND 3MG AT BEDTIME
     Route: 048
     Dates: start: 20210527
  3. ALKINDI SPRINKLE [Suspect]
     Active Substance: HYDROCORTISONE
     Dosage: 1 MILLIGRAM, 3MG IN THE MORNING,1.5MG AT 13:30PM AND 3MG AT BEDTIME
     Route: 048
     Dates: start: 20210527
  4. ALKINDI SPRINKLE [Suspect]
     Active Substance: HYDROCORTISONE
     Dosage: 2 MILLIGRAM, 3MG IN THE MORNING,1.5MG AT 13:30PM AND 3MG AT BEDTIME
     Route: 048
     Dates: start: 20210527
  5. FLUDROCORTISONE [Concomitant]
     Active Substance: FLUDROCORTISONE
     Indication: Product used for unknown indication
  6. VITAMINS [Concomitant]
     Active Substance: VITAMINS
     Indication: Product used for unknown indication
  7. PENICILLIN [Concomitant]
     Active Substance: PENICILLIN
     Indication: Prophylaxis
  8. SINGULAIR [Concomitant]
     Active Substance: MONTELUKAST SODIUM
     Indication: Product used for unknown indication
  9. HYDROCORTISONE [Concomitant]
     Active Substance: HYDROCORTISONE
     Indication: Product used for unknown indication

REACTIONS (1)
  - Loss of consciousness [Recovered/Resolved]

NARRATIVE: CASE EVENT DATE: 20251124
